FAERS Safety Report 6135284-5 (Version None)
Quarter: 2009Q1

REPORT INFORMATION
  Report Type: 
  Country: None (occurrence: None)
  Receive Date: 20090327
  Receipt Date: 20090227
  Transmission Date: 20090719
  Serious: Yes (Hospitalization)
  Sender: FDA-Public Use
  Company Number: KR-ELI_LILLY_AND_COMPANY-KR200903002962

PATIENT
  Age: 57 Year
  Sex: Female

DRUGS (3)
  1. HUMULIN N [Suspect]
     Indication: TYPE 2 DIABETES MELLITUS
     Dosage: 14 U, DAILY (1/D)
     Route: 058
     Dates: start: 20090129
  2. ANTIHYPERTENSIVES [Concomitant]
  3. CORTICOSTEROIDS [Concomitant]

REACTIONS (3)
  - DIZZINESS [None]
  - EXPIRED DRUG ADMINISTERED [None]
  - FALL [None]
